FAERS Safety Report 17911542 (Version 1)
Quarter: 2020Q2

REPORT INFORMATION
  Report Type: Spontaneous
  Country: US (occurrence: US)
  Receive Date: 20200617
  Receipt Date: 20200617
  Transmission Date: 20200714
  Serious: Yes (Other)
  Sender: FDA-Public Use
  Company Number: None

PATIENT
  Age: 31 Year
  Sex: Female
  Weight: 61.23 kg

DRUGS (8)
  1. DOXYCYCLINE 100MG CAPSULE [Suspect]
     Active Substance: DOXYCYCLINE HYCLATE
     Indication: EYE INFECTION
     Dosage: ?          QUANTITY:1 DF DOSAGE FORM;?
     Route: 048
     Dates: start: 20200515, end: 20200527
  2. PROLIA [Concomitant]
     Active Substance: DENOSUMAB
  3. CALCIUM [Concomitant]
     Active Substance: CALCIUM
  4. PROGRESTERONE [Concomitant]
  5. MAGNESIUM [Concomitant]
     Active Substance: MAGNESIUM
  6. BI-EST 50/50 CREAM [Concomitant]
  7. LOTEPREDNOL [Concomitant]
     Active Substance: LOTEPREDNOL
  8. THERATEARS [Concomitant]
     Active Substance: CARBOXYMETHYLCELLULOSE SODIUM

REACTIONS (4)
  - Dyspepsia [None]
  - Eructation [None]
  - Glossitis [None]
  - Hypersensitivity [None]

NARRATIVE: CASE EVENT DATE: 20200501
